FAERS Safety Report 23513234 (Version 2)
Quarter: 2024Q1

REPORT INFORMATION
  Report Type: Report from Study
  Country: CA (occurrence: CA)
  Receive Date: 20240212
  Receipt Date: 20240314
  Transmission Date: 20240410
  Serious: Yes (Other)
  Sender: FDA-Public Use
  Company Number: CA-GLAXOSMITHKLINE-CA2024AMR016459

PATIENT

DRUGS (9)
  1. BUPROPION HYDROCHLORIDE [Interacting]
     Active Substance: BUPROPION HYDROCHLORIDE
     Indication: Depression
     Dosage: 300 MG, QD (1 IN 1 DAY)
     Route: 048
     Dates: start: 2019, end: 2023
  2. BUPROPION HYDROCHLORIDE [Interacting]
     Active Substance: BUPROPION HYDROCHLORIDE
     Indication: Affective disorder
     Dosage: 150 MG, QD
     Route: 048
     Dates: start: 2023
  3. BUPROPION HYDROCHLORIDE [Interacting]
     Active Substance: BUPROPION HYDROCHLORIDE
     Dosage: 150 MG
     Route: 048
     Dates: start: 202401
  4. CONTRAVE [Suspect]
     Active Substance: BUPROPION HYDROCHLORIDE\NALTREXONE HYDROCHLORIDE
     Indication: Weight decreased
     Dosage: UNK, BID (90/8 MG, CUT DOWN DOSE TO ONE ORAL PILL EVERY 12 HOURS)
     Route: 048
     Dates: start: 202311
  5. CONTRAVE [Suspect]
     Active Substance: BUPROPION HYDROCHLORIDE\NALTREXONE HYDROCHLORIDE
     Dosage: 2 DF, BID, 90/8 MG, 2 TABLETS QAM, 2 TABLETS QPM
     Route: 048
     Dates: start: 202312
  6. CONTRAVE [Suspect]
     Active Substance: BUPROPION HYDROCHLORIDE\NALTREXONE HYDROCHLORIDE
     Dosage: 1 DF, BID(1 IN 12 HOURS)
     Route: 048
     Dates: start: 202401
  7. CONTRAVE [Suspect]
     Active Substance: BUPROPION HYDROCHLORIDE\NALTREXONE HYDROCHLORIDE
     Dosage: UNK, 90/8 MG
     Route: 048
     Dates: start: 202311, end: 2023
  8. SYNTHROID [Concomitant]
     Active Substance: LEVOTHYROXINE SODIUM
     Indication: Hypothyroidism
     Dosage: 125 UG, QD
  9. SYNTHROID [Concomitant]
     Active Substance: LEVOTHYROXINE SODIUM
     Dosage: 112 UG, QD

REACTIONS (14)
  - Lower respiratory tract infection [Recovered/Resolved]
  - Tooth infection [Recovered/Resolved]
  - Food craving [Not Recovered/Not Resolved]
  - Depressed mood [Recovered/Resolved]
  - Gastroenteritis viral [Recovered/Resolved]
  - Nausea [Recovered/Resolved]
  - Contraindicated product administered [Unknown]
  - Labelled drug-drug interaction issue [Unknown]
  - Patient dissatisfaction with treatment [Unknown]
  - Inappropriate schedule of product administration [Unknown]
  - Labelled drug-food interaction issue [Unknown]
  - Contraindicated product prescribed [Unknown]
  - Intentional product use issue [Unknown]
  - Hunger [Unknown]

NARRATIVE: CASE EVENT DATE: 20231101
